FAERS Safety Report 14814357 (Version 1)
Quarter: 2020Q3

REPORT INFORMATION
  Report Type: Spontaneous
  Country: DE (occurrence: DE)
  Receive Date: 20180426
  Receipt Date: 20180426
  Transmission Date: 20201104
  Serious: Yes (Hospitalization)
  Sender: FDA-Public Use
  Company Number: IND-DE-009507513-1804DEU010093

PATIENT
  Age: 63 Year
  Sex: Male

DRUGS (1)
  1. ETORICOXIB. [Suspect]
     Active Substance: ETORICOXIB
     Dosage: 90 MG

REACTIONS (3)
  - Transient ischaemic attack [Unknown]
  - Tachycardia [Unknown]
  - Product prescribing error [Unknown]

NARRATIVE: CASE EVENT DATE: 20151009
